FAERS Safety Report 7512733-9 (Version None)
Quarter: 2011Q2

REPORT INFORMATION
  Report Type: 
  Country: None (occurrence: None)
  Receive Date: 20110531
  Receipt Date: 20110513
  Transmission Date: 20111010
  Serious: Yes (Hospitalization)
  Sender: FDA-Public Use
  Company Number: A0779019A

PATIENT
  Age: 59 Year
  Sex: Female
  Weight: 97.3 kg

DRUGS (10)
  1. MINOXIDIL [Concomitant]
  2. INSULIN [Concomitant]
  3. PRINIVIL [Concomitant]
  4. PREMARIN [Concomitant]
  5. TOPROL-XL [Concomitant]
  6. AVANDIA [Suspect]
     Dosage: 4MG TWICE PER DAY
     Route: 048
     Dates: start: 20010401, end: 20070301
  7. NIFEDIPINE [Concomitant]
  8. HYDROCHLOROTHIAZIDE [Concomitant]
  9. LASIX [Concomitant]
  10. LISINOPRIL [Concomitant]

REACTIONS (5)
  - CARDIAC FAILURE CONGESTIVE [None]
  - CEREBROVASCULAR ACCIDENT [None]
  - MYOCARDIAL ISCHAEMIA [None]
  - RENAL INJURY [None]
  - MYOCARDIAL INFARCTION [None]
